FAERS Safety Report 11313885 (Version 1)
Quarter: 2015Q3

REPORT INFORMATION
  Report Type: Spontaneous
  Country: IN (occurrence: IN)
  Receive Date: 20150727
  Receipt Date: 20150727
  Transmission Date: 20151125
  Serious: Yes (Other)
  Sender: FDA-Public Use
  Company Number: IN-SA-2015SA107692

PATIENT
  Age: 32 Year
  Sex: Male

DRUGS (10)
  1. STREPTOMYCIN [Concomitant]
     Active Substance: STREPTOMYCIN\STREPTOMYCIN SULFATE
     Indication: INFECTIOUS PLEURAL EFFUSION
     Route: 030
  2. RIFAMPICIN [Suspect]
     Active Substance: RIFAMPIN
     Indication: INFECTIOUS PLEURAL EFFUSION
     Route: 048
  3. ETHAMBUTOL [Concomitant]
     Active Substance: ETHAMBUTOL HYDROCHLORIDE
     Indication: INFECTIOUS PLEURAL EFFUSION
  4. ETHAMBUTOL [Concomitant]
     Active Substance: ETHAMBUTOL HYDROCHLORIDE
     Indication: INFECTIOUS PLEURAL EFFUSION
  5. RIFAMPICIN [Suspect]
     Active Substance: RIFAMPIN
     Indication: INFECTIOUS PLEURAL EFFUSION
     Route: 048
  6. ISONIAZID. [Concomitant]
     Active Substance: ISONIAZID
     Indication: INFECTIOUS PLEURAL EFFUSION
     Route: 048
  7. PYRAZINAMIDE. [Suspect]
     Active Substance: PYRAZINAMIDE
     Indication: INFECTIOUS PLEURAL EFFUSION
     Route: 065
  8. PYRAZINAMIDE. [Suspect]
     Active Substance: PYRAZINAMIDE
     Indication: INFECTIOUS PLEURAL EFFUSION
     Route: 065
  9. STREPTOMYCIN [Concomitant]
     Active Substance: STREPTOMYCIN\STREPTOMYCIN SULFATE
     Indication: INFECTIOUS PLEURAL EFFUSION
     Route: 030
  10. ISONIAZID. [Concomitant]
     Active Substance: ISONIAZID
     Indication: INFECTIOUS PLEURAL EFFUSION

REACTIONS (13)
  - International normalised ratio increased [Recovered/Resolved]
  - Prothrombin time prolonged [Recovered/Resolved]
  - Petechiae [Recovered/Resolved]
  - Angina bullosa haemorrhagica [Recovered/Resolved]
  - Red blood cell sedimentation rate increased [Recovered/Resolved]
  - Pain [Recovered/Resolved]
  - Oral mucosal blistering [Recovered/Resolved]
  - Tongue blistering [Recovered/Resolved]
  - Pyrexia [Recovered/Resolved]
  - Thrombocytopenia [Recovered/Resolved]
  - Bleeding time prolonged [Recovered/Resolved]
  - Lip blister [Recovered/Resolved]
  - Haemoglobin decreased [Recovered/Resolved]
